FAERS Safety Report 7007218-2 (Version None)
Quarter: 2010Q3

REPORT INFORMATION
  Report Type: 
  Country: None (occurrence: None)
  Receive Date: 20100916
  Receipt Date: 20100908
  Transmission Date: 20110219
  Serious: Yes (Other)
  Sender: FDA-Public Use
  Company Number: 2010SP048347

PATIENT
  Age: 13 Year
  Sex: Female

DRUGS (2)
  1. NASONEX [Suspect]
     Indication: MULTIPLE ALLERGIES
     Dosage: 50 MCG;PRN;INH
     Route: 055
     Dates: start: 20050101, end: 20100801
  2. LORATADINE [Concomitant]

REACTIONS (3)
  - HYPOAESTHESIA [None]
  - PAIN IN JAW [None]
  - PRODUCT QUALITY ISSUE [None]
